FAERS Safety Report 11746567 (Version 1)
Quarter: 2015Q4

REPORT INFORMATION
  Report Type: Spontaneous
  Country: TR (occurrence: TR)
  Receive Date: 20151117
  Receipt Date: 20151117
  Transmission Date: 20160304
  Serious: Yes (Hospitalization, Other)
  Sender: FDA-Public Use
  Company Number: TR-TEVA-609762ISR

PATIENT
  Age: 13 Year
  Sex: Female

DRUGS (3)
  1. LOMUSTINE. [Suspect]
     Active Substance: LOMUSTINE
     Indication: CHEMOTHERAPY
     Dosage: 7 CYCLES OF CHEMOTHERAPY
     Dates: start: 200903, end: 201006
  2. VINCRISTINE [Suspect]
     Active Substance: VINCRISTINE
     Indication: CHEMOTHERAPY
     Dosage: 7 CYCLES OF CHEMOTHERAPY
     Dates: start: 200903, end: 201006
  3. CISPLATIN. [Suspect]
     Active Substance: CISPLATIN
     Indication: CHEMOTHERAPY
     Dosage: 7 CYCLES OF CHEMOTHERAPY
     Dates: start: 200903, end: 201006

REACTIONS (6)
  - Pallor [Unknown]
  - Speech disorder [Unknown]
  - Raynaud^s phenomenon [Unknown]
  - Ataxia [Unknown]
  - Osteoporosis [Unknown]
  - Hypothyroidism [Unknown]
